FAERS Safety Report 5741245-8 (Version None)
Quarter: 2008Q2

REPORT INFORMATION
  Report Type: 
  Country: None (occurrence: None)
  Receive Date: 20080516
  Receipt Date: 20080506
  Transmission Date: 20081010
  Serious: Yes (Other)
  Sender: FDA-Public Use
  Company Number: US-PFIZER INC-2008041313

PATIENT

DRUGS (2)
  1. NELFINAVIR MESILATE [Suspect]
     Indication: HIV INFECTION
  2. EFAVIRENZ [Suspect]
     Indication: HIV INFECTION

REACTIONS (4)
  - HEPATITIS [None]
  - MITOCHONDRIAL TOXICITY [None]
  - NEUTROPENIA [None]
  - THROMBOCYTOPENIA [None]
